FAERS Safety Report 6955615-3 (Version None)
Quarter: 2010Q3

REPORT INFORMATION
  Report Type: 
  Country: None (occurrence: None)
  Receive Date: 20100830
  Receipt Date: 20100825
  Transmission Date: 20110219
  Serious: Yes (Hospitalization)
  Sender: FDA-Public Use
  Company Number: US-PFIZER INC-2008078817

PATIENT
  Sex: Female
  Weight: 129.71 kg

DRUGS (34)
  1. IBUPROFEN [Suspect]
     Indication: RHEUMATOID ARTHRITIS
     Dosage: HIGH DOSE
     Route: 048
     Dates: start: 20070829
  2. NAPROXEN [Suspect]
     Indication: RHEUMATOID ARTHRITIS
     Dosage: HIGH DOSE
     Route: 048
     Dates: start: 20070829
  3. BLINDED *NO SUBJECT DRUG [Suspect]
     Indication: RHEUMATOID ARTHRITIS
     Dosage: HIGH DOSE
     Route: 048
     Dates: start: 20070829
  4. BLINDED *PLACEBO [Suspect]
     Indication: RHEUMATOID ARTHRITIS
     Dosage: HIGH DOSE
     Route: 048
     Dates: start: 20070829
  5. CELECOXIB [Suspect]
     Indication: RHEUMATOID ARTHRITIS
     Dosage: HIGH DOSE
     Route: 048
     Dates: start: 20070829
  6. IBUPROFEN [Suspect]
     Dosage: HIGH DOSE
     Route: 048
     Dates: start: 20070829
  7. NAPROXEN [Suspect]
     Dosage: HIGH DOSE
     Route: 048
     Dates: start: 20070829
  8. DETROL LA [Suspect]
     Dosage: QPM
     Route: 048
     Dates: start: 20080625, end: 20080709
  9. NEXIUM [Concomitant]
     Indication: GASTROOESOPHAGEAL REFLUX DISEASE
     Dosage: 40 MG, 1X/DAY
     Route: 048
  10. ISOSORBIDE [Concomitant]
     Dosage: 60 MG, 1X/DAY
     Route: 048
  11. LISINOPRIL [Concomitant]
     Indication: HYPERTENSION
     Dosage: FREQUENCY:BID;INTERVAL:QD
     Route: 048
     Dates: end: 20080909
  12. LISINOPRIL [Concomitant]
     Indication: BLOOD PRESSURE
  13. HYDRALAZINE [Concomitant]
     Indication: HYPERTENSION
     Dosage: 25 MG, 2X/DAY
     Route: 048
  14. DICLOFENAC [Concomitant]
     Indication: RHEUMATOID ARTHRITIS
     Dosage: 75 MG, 2X/DAY
     Route: 048
     Dates: end: 20080909
  15. BUPROPION [Concomitant]
     Indication: DEPRESSION
     Dosage: 150 MG, 2X/DAY
     Route: 048
     Dates: end: 20080909
  16. POTASSIUM CHLORIDE [Concomitant]
     Indication: MINERAL SUPPLEMENTATION
     Dosage: 10 MEQ, 2X/DAY
     Route: 048
     Dates: end: 20080909
  17. LASIX [Concomitant]
     Indication: DIURETIC THERAPY
     Dosage: 80 MG, 1X/DAY
     Route: 048
  18. METFORMIN [Concomitant]
     Indication: DIABETES MELLITUS
     Dosage: 1000 MG, 2X/DAY
     Route: 048
  19. AMLODIPINE [Concomitant]
     Indication: HYPERTENSION
     Dosage: 5 MG, 1X/DAY
     Route: 048
  20. GLIPIZIDE [Concomitant]
     Indication: DIABETES MELLITUS
     Dosage: 20 MG, 1X/DAY
     Route: 048
  21. CITALOPRAM [Concomitant]
     Indication: DEPRESSION
     Dosage: 60 MG, 1X/DAY, QPM
     Route: 048
  22. TOPROL-XL [Concomitant]
     Indication: HYPERTENSION
     Dosage: 200 MG, 1X/DAY
     Route: 048
  23. SIMVASTATIN [Concomitant]
     Indication: HYPERCHOLESTEROLAEMIA
     Dosage: 40 MG, 1X/DAY
     Route: 048
     Dates: end: 20080909
  24. LORAZEPAM [Concomitant]
     Indication: ANXIETY
     Dosage: PRN
     Route: 048
  25. ARTIFICIAL TEARS [Concomitant]
     Indication: DRY EYE
     Dosage: PRN
     Route: 047
  26. ALBUTEROL [Concomitant]
     Indication: DYSPNOEA
     Dosage: PRN
     Route: 055
  27. OXYMETAZOLINE HCL [Concomitant]
     Indication: NASAL CONGESTION
     Dosage: PRN
     Route: 045
  28. TUMS [Concomitant]
     Indication: DYSPEPSIA
     Dosage: 1-2 TABS PRN
     Route: 048
  29. FLONASE [Concomitant]
     Indication: HYPERSENSITIVITY
     Dosage: PRN
     Route: 045
  30. DARVOCET-N 100 [Concomitant]
     Indication: PAIN
     Dosage: 1 TAB PRN
     Route: 048
  31. TYLENOL-500 [Concomitant]
     Indication: PAIN
     Dosage: PRN
     Route: 048
  32. TYLENOL PM [Concomitant]
     Indication: PAIN
     Dosage: AS NEEDED
     Route: 048
  33. TYLENOL PM [Concomitant]
     Indication: SLEEP DISORDER
  34. AMBIEN [Concomitant]
     Indication: INSOMNIA
     Dosage: PRN
     Route: 048

REACTIONS (1)
  - ENCEPHALOPATHY [None]
